FAERS Safety Report 23307390 (Version 1)
Quarter: 2023Q4

REPORT INFORMATION
  Report Type: Spontaneous
  Country: US (occurrence: US)
  Receive Date: 20231218
  Receipt Date: 20231218
  Transmission Date: 20240109
  Serious: No
  Sender: FDA-Public Use
  Company Number: US-Merck Healthcare KGaA-2023492762

PATIENT
  Age: 53 Year
  Sex: Female

DRUGS (1)
  1. MAVENCLAD [Suspect]
     Active Substance: CLADRIBINE
     Indication: Multiple sclerosis
     Dosage: CYCLE ONE THERAPY
     Route: 048

REACTIONS (5)
  - Nausea [Unknown]
  - Fatigue [Unknown]
  - Pain [Unknown]
  - Headache [Unknown]
  - Mood swings [Unknown]

NARRATIVE: CASE EVENT DATE: 20231123
